FAERS Safety Report 21045454 (Version 7)
Quarter: 2023Q2

REPORT INFORMATION
  Report Type: Spontaneous
  Country: ZA (occurrence: ZA)
  Receive Date: 20220706
  Receipt Date: 20230421
  Transmission Date: 20230722
  Serious: Yes (Other)
  Sender: FDA-Public Use
  Company Number: ZA-CELLTRION INC.-2022ZA010272

PATIENT

DRUGS (6)
  1. INFLIXIMAB [Suspect]
     Active Substance: INFLIXIMAB
     Indication: Psoriatic arthropathy
     Dosage: 450 MG, EVERY 8 WEEKS
     Route: 042
  2. METHOTREXATE [Concomitant]
     Active Substance: METHOTREXATE
     Indication: Psoriatic arthropathy
     Dosage: 17.5 MG, WEEKLY
     Route: 058
  3. CHLOROQUINE [Concomitant]
     Active Substance: CHLOROQUINE
     Indication: Psoriatic arthropathy
     Dosage: 200 MG, DAILY
     Route: 048
  4. SULFASALAZINE [Concomitant]
     Active Substance: SULFASALAZINE
     Indication: Psoriatic arthropathy
     Dosage: 2 G, DAILY
     Route: 048
  5. SULFASALAZINE [Concomitant]
     Active Substance: SULFASALAZINE
     Dosage: 4 MILLIGRAM
     Route: 048
  6. MEDROL [Concomitant]
     Active Substance: METHYLPREDNISOLONE
     Indication: Psoriatic arthropathy
     Dosage: 4 MG
     Route: 048

REACTIONS (4)
  - Knee operation [Recovering/Resolving]
  - Condition aggravated [Unknown]
  - Pain in extremity [Unknown]
  - Treatment delayed [Recovering/Resolving]

NARRATIVE: CASE EVENT DATE: 20220614
